FAERS Safety Report 6506884-5 (Version None)
Quarter: 2009Q4

REPORT INFORMATION
  Report Type: 
  Country: None (occurrence: None)
  Receive Date: 20091221
  Receipt Date: 20091217
  Transmission Date: 20100525
  Serious: Yes (Other)
  Sender: FDA-Public Use
  Company Number: DE-SANOFI-AVENTIS-2009SA009634

PATIENT
  Age: 61 Year
  Sex: Male

DRUGS (2)
  1. TRENTAL [Suspect]
     Route: 048
     Dates: end: 20091201
  2. TRENTAL [Suspect]
     Route: 048
     Dates: start: 20091201

REACTIONS (3)
  - CHROMATOPSIA [None]
  - EYE HAEMORRHAGE [None]
  - VISUAL IMPAIRMENT [None]
